FAERS Safety Report 4846245-8 (Version None)
Quarter: 2005Q4

REPORT INFORMATION
  Report Type: 
  Country: None (occurrence: None)
  Receive Date: 20051115
  Receipt Date: 20050825
  Transmission Date: 20060501
  Serious: Yes (Other)
  Sender: FDA-Public Use
  Company Number: 415663

PATIENT
  Age: 57 Year
  Sex: Male

DRUGS (3)
  1. PEGASYS [Suspect]
     Indication: HEPATITIS C
     Dosage: 1 PER WEEK  SUBCUTANEOUS
     Route: 058
     Dates: start: 20041108, end: 20050415
  2. RIBAVIRIN [Suspect]
     Indication: HEPATITIS C
     Dates: start: 20041108, end: 20050415
  3. CLOZAPINE [Concomitant]

REACTIONS (1)
  - NEUTROPENIA [None]
